FAERS Safety Report 10222047 (Version 1)
Quarter: 2014Q2

REPORT INFORMATION
  Report Type: Spontaneous
  Country: MX (occurrence: MX)
  Receive Date: 20140606
  Receipt Date: 20140606
  Transmission Date: 20141212
  Serious: No
  Sender: FDA-Public Use
  Company Number: MX-BIOMARINAP-MX-2014-102743

PATIENT
  Age: 10 Year
  Sex: Male
  Weight: 23.5 kg

DRUGS (1)
  1. NAGLAZYME [Suspect]
     Indication: PRODUCT USED FOR UNKNOWN INDICATION
     Dosage: 25 MG, QW
     Route: 041
     Dates: start: 20110204

REACTIONS (1)
  - Acne [Recovering/Resolving]
